FAERS Safety Report 23986683 (Version 1)
Quarter: 2024Q2

REPORT INFORMATION
  Report Type: Spontaneous
  Country: US (occurrence: US)
  Receive Date: 20240618
  Receipt Date: 20240618
  Transmission Date: 20240716
  Serious: Yes (Hospitalization)
  Sender: FDA-Public Use
  Company Number: US-MYLANLABS-2024M1054874

PATIENT
  Sex: Female
  Weight: 124.74 kg

DRUGS (1)
  1. NITROGLYCERIN [Suspect]
     Active Substance: NITROGLYCERIN
     Indication: Product used for unknown indication
     Dosage: 0.3 MILLIGRAM(SL ONE UNDER TONGUE IT REPEAT AFTER 15 MINUTES AS NEEDED)
     Route: 060

REACTIONS (2)
  - Surgery [Unknown]
  - Migraine [Not Recovered/Not Resolved]
